FAERS Safety Report 25386435 (Version 1)
Quarter: 2025Q2

REPORT INFORMATION
  Report Type: Spontaneous
  Country: NL (occurrence: NL)
  Receive Date: 20250602
  Receipt Date: 20250602
  Transmission Date: 20250716
  Serious: Yes (Life-Threatening, Hospitalization)
  Sender: MYLAN
  Company Number: None

PATIENT
  Age: 75 Year
  Sex: Female
  Weight: 104 kg

DRUGS (2)
  1. ACETAMINOPHEN [Interacting]
     Active Substance: ACETAMINOPHEN
     Indication: Product used for unknown indication
     Dosage: 1000 MILLIGRAM, Q6H,1000 MG 4 TIMES DAILY
     Dates: start: 20250425, end: 20250516
  2. FLUCLOXACILLIN [Interacting]
     Active Substance: FLUCLOXACILLIN
     Indication: Product used for unknown indication
     Dosage: 1 DOSAGE FORM, Q4H (1 TABLET 6 TIMES DAILY IN COMBINATION WITH PARACETAMOL 1000 MG 4 TIMES DAILY)
     Dates: start: 20250425, end: 20250516

REACTIONS (2)
  - Metabolic acidosis [Unknown]
  - Drug interaction [Unknown]
